FAERS Safety Report 17811166 (Version 3)
Quarter: 2020Q3

REPORT INFORMATION
  Report Type: Spontaneous
  Country: US (occurrence: US)
  Receive Date: 20200521
  Receipt Date: 20200709
  Transmission Date: 20201102
  Serious: No
  Sender: FDA-Public Use
  Company Number: US-JNJFOC-20200523942

PATIENT
  Sex: Female

DRUGS (1)
  1. DURAGESIC [Suspect]
     Active Substance: FENTANYL
     Indication: PAIN
     Route: 062

REACTIONS (5)
  - Application site reaction [Unknown]
  - Drug ineffective [Unknown]
  - Application site pruritus [Unknown]
  - Product adhesion issue [Unknown]
  - Wrong technique in product usage process [Unknown]
